FAERS Safety Report 9834469 (Version 2)
Quarter: 2016Q2

REPORT INFORMATION
  Report Type: Report from Study
  Country: US (occurrence: US)
  Receive Date: 20140122
  Receipt Date: 20160614
  Transmission Date: 20160815
  Serious: Yes (Other)
  Sender: FDA-Public Use
  Company Number: US-ROCHE-1334938

PATIENT
  Sex: Female

DRUGS (4)
  1. TETRACAINE. [Concomitant]
     Active Substance: TETRACAINE
  2. LIDOCAINE. [Concomitant]
     Active Substance: LIDOCAINE
     Route: 061
  3. AVASTIN [Suspect]
     Active Substance: BEVACIZUMAB
     Indication: RETINAL VEIN OCCLUSION
     Dosage: RIGHT EYE
     Route: 050
  4. BETADINE [Concomitant]
     Active Substance: POVIDONE-IODINE

REACTIONS (4)
  - Macular oedema [Unknown]
  - Retinal degeneration [Unknown]
  - Ophthalmological examination abnormal [Unknown]
  - Retinal tear [Unknown]
